FAERS Safety Report 18312121 (Version 1)
Quarter: 2020Q3

REPORT INFORMATION
  Report Type: Spontaneous
  Country: US (occurrence: US)
  Receive Date: 20200924
  Receipt Date: 20200924
  Transmission Date: 20201103
  Serious: Yes (Hospitalization)
  Sender: FDA-Public Use
  Company Number: None

PATIENT
  Age: 71 Year
  Sex: Male

DRUGS (2)
  1. DEXAMETHASONE (DEXAMETHASONE 0.5MG TAB) [Suspect]
     Active Substance: DEXAMETHASONE
     Indication: METASTATIC RENAL CELL CARCINOMA
     Route: 048
     Dates: start: 20200519
  2. AMLODIPINE (AMLODIPINE BESYLATE 10MG TAB) [Suspect]
     Active Substance: AMLODIPINE BESYLATE
     Route: 048
     Dates: start: 20190124, end: 20200831

REACTIONS (5)
  - Diabetes mellitus [None]
  - Oedema peripheral [None]
  - Weight increased [None]
  - Cushingoid [None]
  - Hypertension [None]

NARRATIVE: CASE EVENT DATE: 20200828
